FAERS Safety Report 9457797 (Version 3)
Quarter: 2014Q1

REPORT INFORMATION
  Report Type: Report from Study
  Country: DE (occurrence: DE)
  Receive Date: 20130814
  Receipt Date: 20140123
  Transmission Date: 20141002
  Serious: Yes (Hospitalization)
  Sender: FDA-Public Use
  Company Number: PHHY2013DE086197

PATIENT
  Age: 47 Year
  Sex: Female

DRUGS (10)
  1. FTY 720 [Suspect]
     Indication: MULTIPLE SCLEROSIS
     Dosage: 0.5 MG, QD
     Route: 048
     Dates: start: 20120917
  2. SPASMOLYT [Concomitant]
     Dosage: 30 MG, QD
  3. SIRDALUD [Concomitant]
     Dosage: 4 MG, QD
     Route: 048
  4. OPIPRAMOL [Concomitant]
     Dosage: 50 MG, QD
     Route: 048
  5. AMITRIPTYLINE [Concomitant]
     Dosage: 10 MG, QD
  6. CITALOPRAM [Concomitant]
     Dosage: 30 MG, QD
     Route: 048
  7. TRAMAL [Concomitant]
  8. PANTOZOL [Concomitant]
     Dosage: 40 MG, QD
     Route: 048
  9. DICLOFENAC [Concomitant]
     Dosage: 50 MG, QD
     Route: 048
  10. DEKRISTOL [Concomitant]
     Dosage: 20000 IU, QW

REACTIONS (3)
  - Thinking abnormal [Recovered/Resolved]
  - Delusion [Recovered/Resolved]
  - Suicidal ideation [Recovered/Resolved]
